FAERS Safety Report 24450982 (Version 3)
Quarter: 2025Q1

REPORT INFORMATION
  Report Type: Spontaneous
  Country: ES (occurrence: ES)
  Receive Date: 20241017
  Receipt Date: 20250224
  Transmission Date: 20250409
  Serious: No
  Sender: UCB
  Company Number: ES-UCBSA-2024051050

PATIENT
  Age: 35 Year
  Sex: Female

DRUGS (3)
  1. NEUPRO [Suspect]
     Active Substance: ROTIGOTINE
     Indication: Parkinson^s disease
     Dosage: 8 MILLIGRAM (DISTRIBUTED IN 2 PATCHES OF 4 MG) PER 24 HOUR
     Route: 062
     Dates: start: 20190705
  2. CARBIDOPA\LEVODOPA [Concomitant]
     Active Substance: CARBIDOPA\LEVODOPA
     Indication: Parkinson^s disease
     Route: 048
     Dates: start: 20220124
  3. CARBIDOPA\LEVODOPA [Concomitant]
     Active Substance: CARBIDOPA\LEVODOPA
     Route: 048
     Dates: start: 20240410

REACTIONS (6)
  - Maternal exposure before pregnancy [Unknown]
  - Maternal exposure during pregnancy [Unknown]
  - Maternal exposure during breast feeding [Unknown]
  - Pre-eclampsia [Unknown]
  - Product adhesion issue [Unknown]
  - Drug ineffective [Unknown]

NARRATIVE: CASE EVENT DATE: 20240301
